FAERS Safety Report 18061752 (Version 1)
Quarter: 2020Q3

REPORT INFORMATION
  Report Type: Spontaneous
  Country: GB (occurrence: GB)
  Receive Date: 20200723
  Receipt Date: 20200723
  Transmission Date: 20201103
  Serious: Yes (Hospitalization)
  Sender: FDA-Public Use
  Company Number: GB-MYLANLABS-2020M1066921

PATIENT
  Age: 32 Year
  Sex: Female
  Weight: 73.1 kg

DRUGS (4)
  1. BUPIVACAINE. [Suspect]
     Active Substance: BUPIVACAINE
     Dosage: 5 MILLIGRAM
     Route: 037
  2. BUPIVACAINE. [Suspect]
     Active Substance: BUPIVACAINE
     Indication: LOCAL ANAESTHESIA
     Dosage: 12 MILLIGRAM
     Route: 037
  3. BUPIVACAINE. [Suspect]
     Active Substance: BUPIVACAINE
     Dosage: 2.5 MILLIGRAM 15 MIN
     Route: 037
  4. FENTANYL. [Suspect]
     Active Substance: FENTANYL
     Indication: LOCAL ANAESTHESIA
     Dosage: 25 MICROGRAM
     Route: 037

REACTIONS (2)
  - Drug ineffective [Unknown]
  - Maternal exposure during pregnancy [Recovered/Resolved]
